FAERS Safety Report 5446237-4 (Version None)
Quarter: 2007Q3

REPORT INFORMATION
  Report Type: 
  Country: None (occurrence: None)
  Receive Date: 20070907
  Receipt Date: 20070828
  Transmission Date: 20080115
  Serious: Yes (Other)
  Sender: FDA-Public Use
  Company Number: PHHO2007CL14317

PATIENT
  Age: 43 Year
  Sex: Male

DRUGS (2)
  1. TAREG [Suspect]
     Indication: HYPERTENSION
  2. ACETYLSALICYLATE [Concomitant]

REACTIONS (1)
  - ANGINA UNSTABLE [None]
